FAERS Safety Report 8595421-X (Version None)
Quarter: 2012Q3

REPORT INFORMATION
  Report Type: 
  Country: None (occurrence: None)
  Receive Date: 20120815
  Receipt Date: 20120612
  Transmission Date: 20120928
  Serious: No
  Sender: FDA-Public Use
  Company Number: US-BRISTOL-MYERS SQUIBB COMPANY-16684557

PATIENT
  Age: 48 Year
  Sex: Female

DRUGS (3)
  1. ONGLYZA [Suspect]
     Dates: start: 20120201, end: 20120605
  2. ACTOS [Concomitant]
  3. METFORMIN HYDROCHLORIDE [Concomitant]

REACTIONS (1)
  - GASTROINTESTINAL DISORDER [None]
